FAERS Safety Report 13576515 (Version 1)
Quarter: 2017Q2

REPORT INFORMATION
  Report Type: Report from Study
  Country: UZ (occurrence: UZ)
  Receive Date: 20170524
  Receipt Date: 20170524
  Transmission Date: 20170830
  Serious: Yes (Death, Other)
  Sender: FDA-Public Use
  Company Number: PHHY2017UZ075640

PATIENT
  Age: 54 Year
  Sex: Male

DRUGS (1)
  1. GLIVEC [Suspect]
     Active Substance: IMATINIB MESYLATE
     Indication: CHRONIC MYELOID LEUKAEMIA
     Dosage: 400 MG, UNK
     Route: 065

REACTIONS (4)
  - Pulmonary tuberculosis [Unknown]
  - Death [Fatal]
  - Pulmonary tuberculoma [Unknown]
  - Poisoning [Unknown]

NARRATIVE: CASE EVENT DATE: 20170514
